FAERS Safety Report 10144432 (Version 1)
Quarter: 2014Q2

REPORT INFORMATION
  Report Type: Spontaneous
  Country: GB (occurrence: GB)
  Receive Date: 20140430
  Receipt Date: 20140430
  Transmission Date: 20141212
  Serious: Yes (Disabling, Congenital Anomaly)
  Sender: FDA-Public Use
  Company Number: PHHY2014GB049890

PATIENT
  Age: 2 Year
  Sex: Female
  Weight: 12.6 kg

DRUGS (1)
  1. FLUOXETINE [Suspect]
     Indication: DEPRESSION
     Route: 064
     Dates: end: 201101

REACTIONS (5)
  - Dysmorphism [Not Recovered/Not Resolved]
  - Low birth weight baby [Unknown]
  - Head deformity [Not Recovered/Not Resolved]
  - Limb malformation [Not Recovered/Not Resolved]
  - Neck deformity [Not Recovered/Not Resolved]
